FAERS Safety Report 6700475-9 (Version None)
Quarter: 2010Q2

REPORT INFORMATION
  Report Type: 
  Country: None (occurrence: None)
  Receive Date: 20100428
  Receipt Date: 20100419
  Transmission Date: 20101027
  Serious: Yes (Disabling)
  Sender: FDA-Public Use
  Company Number: GXKR2010GB04413

PATIENT
  Age: 66 Year
  Sex: Female
  Weight: 64 kg

DRUGS (2)
  1. SIMVASTATIN [Suspect]
     Indication: BLOOD CHOLESTEROL INCREASED
     Dosage: 20 MG, UNK
     Route: 048
     Dates: start: 20090615, end: 20091002
  2. DIAZEPAM [Concomitant]
     Indication: ANXIETY
     Dosage: 2 MG, UNK
     Route: 048
     Dates: start: 19900101

REACTIONS (4)
  - DYSARTHRIA [None]
  - MOTOR NEURONE DISEASE [None]
  - MUSCLE CONTRACTIONS INVOLUNTARY [None]
  - SENSORY DISTURBANCE [None]
